FAERS Safety Report 4668669-4 (Version None)
Quarter: 2005Q2

REPORT INFORMATION
  Report Type: 
  Country: None (occurrence: None)
  Receive Date: 20050523
  Receipt Date: 20050513
  Transmission Date: 20051028
  Serious: Yes (Other)
  Sender: FDA-Public Use
  Company Number: US-KINGPHARMUSA00001-K200500621

PATIENT
  Age: 80 Year
  Sex: Female

DRUGS (5)
  1. ALTACE [Suspect]
     Indication: PROPHYLAXIS
     Dosage: 2.5 MG, QD
     Route: 048
     Dates: start: 20050426, end: 20050429
  2. METFORMIN [Concomitant]
     Indication: DIABETES MELLITUS
     Dosage: 850 UNK, TID
     Route: 048
  3. ASPIRIN [Concomitant]
     Dosage: 80 MG, UNK
     Route: 048
  4. LIPIDIL SUPRA [Concomitant]
     Indication: BLOOD CHOLESTEROL INCREASED
     Dosage: 160 MG, UNK
     Route: 048
  5. ACTOS [Concomitant]
     Indication: DIABETES MELLITUS
     Dosage: 30 MG, UNK
     Route: 048

REACTIONS (2)
  - ASTHENIA [None]
  - CONFUSIONAL STATE [None]
